FAERS Safety Report 19061837 (Version 2)
Quarter: 2021Q2

REPORT INFORMATION
  Report Type: Report from Study
  Country: None (occurrence: AR)
  Receive Date: 20210325
  Receipt Date: 20210424
  Transmission Date: 20210717
  Serious: Yes (Death, Hospitalization, Other)
  Sender: FDA-Public Use
  Company Number: AR-ABBVIE-21K-007-3828660-00

PATIENT
  Age: 67 Year
  Sex: Female

DRUGS (1)
  1. HUMIRA [Suspect]
     Active Substance: ADALIMUMAB
     Indication: RHEUMATOID ARTHRITIS
     Route: 058
     Dates: start: 20180831

REACTIONS (2)
  - Pneumonia [Not Recovered/Not Resolved]
  - Cardiac disorder [Fatal]

NARRATIVE: CASE EVENT DATE: 20210318
